FAERS Safety Report 8381464-8 (Version None)
Quarter: 2012Q2

REPORT INFORMATION
  Report Type: 
  Country: None (occurrence: None)
  Receive Date: 20120523
  Receipt Date: 20120514
  Transmission Date: 20120825
  Serious: Yes (Death)
  Sender: FDA-Public Use
  Company Number: US-BAXTER-2012BAX005644

PATIENT
  Sex: Male

DRUGS (3)
  1. DIANEAL LOW CALCIUM W/ DEXTROSE 1.5% [Suspect]
  2. DIANEAL [Suspect]
     Indication: PERITONEAL DIALYSIS
  3. DIANEAL [Suspect]

REACTIONS (1)
  - DEATH [None]
